FAERS Safety Report 10082117 (Version 1)
Quarter: 2014Q2

REPORT INFORMATION
  Report Type: Spontaneous
  Country: BR (occurrence: BR)
  Receive Date: 20140416
  Receipt Date: 20140416
  Transmission Date: 20141212
  Serious: Yes (Other)
  Sender: FDA-Public Use
  Company Number: BR-ASTRAZENECA-2014SE25218

PATIENT
  Sex: Male

DRUGS (9)
  1. BRILINTA [Suspect]
     Route: 048
     Dates: start: 20130730, end: 201401
  2. BRILINTA [Suspect]
     Route: 048
     Dates: start: 201401
  3. SELOZOK [Suspect]
     Route: 048
  4. CLORANA [Suspect]
     Route: 048
  5. PURAN T4 [Concomitant]
     Route: 048
  6. LOSARTAN POTASSIUM [Concomitant]
     Route: 048
  7. AMLODIPINE [Concomitant]
     Route: 048
  8. ASPIRINA [Concomitant]
     Route: 048
  9. VASTAREL [Concomitant]
     Route: 048

REACTIONS (3)
  - Anaemia [Recovered/Resolved]
  - Haemorrhage [Recovered/Resolved]
  - Off label use [Not Recovered/Not Resolved]
